FAERS Safety Report 9392964 (Version 3)
Quarter: 2015Q1

REPORT INFORMATION
  Report Type: Spontaneous
  Country: US (occurrence: US)
  Receive Date: 20130710
  Receipt Date: 20150317
  Transmission Date: 20150721
  Serious: No
  Sender: FDA-Public Use
  Company Number: US-PFIZER INC-2013201835

PATIENT
  Age: 69 Year
  Sex: Female

DRUGS (1)
  1. DILANTIN-125 [Suspect]
     Active Substance: PHENYTOIN
     Dosage: UNK

REACTIONS (5)
  - Headache [Unknown]
  - Drug hypersensitivity [Unknown]
  - Rash [Unknown]
  - Nausea [Unknown]
  - Lymphadenopathy [Unknown]
